FAERS Safety Report 9042687 (Version 1)
Quarter: 2013Q1

REPORT INFORMATION
  Report Type: Spontaneous
  Country: US (occurrence: US)
  Receive Date: 20130129
  Receipt Date: 20130129
  Transmission Date: 20140127
  Serious: Yes (Other)
  Sender: FDA-Public Use
  Company Number: US-009507513-1301USA011414

PATIENT
  Age: 41 Year
  Sex: Female

DRUGS (4)
  1. ISENTRESS [Suspect]
     Indication: HIV INFECTION
     Dosage: 800 MG, QD
     Route: 048
  2. TRUVADA [Suspect]
     Dosage: 1 DF, QD
     Route: 048
  3. PREZISTA [Suspect]
     Dosage: 600 MG, QD
     Route: 048
  4. NORVIR [Suspect]
     Dosage: 100 MG, QD
     Route: 048

REACTIONS (2)
  - Abortion induced [Unknown]
  - Exposure during pregnancy [Recovered/Resolved]
